FAERS Safety Report 8962250 (Version 2)
Quarter: 2012Q4

REPORT INFORMATION
  Report Type: 
  Country: GB (occurrence: GB)
  Receive Date: 20121212
  Receipt Date: 20121228
  Transmission Date: 20130627
  Serious: Yes (Other)
  Sender: FDA-Public Use
  Company Number: GB-ALLERGAN-1217115US

PATIENT
  Age: 90 Year
  Sex: Female

DRUGS (1)
  1. OZURDEX [Suspect]
     Indication: CENTRAL RETINAL VEIN OCCLUSION
     Dosage: 0.7 mg, single
     Route: 031
     Dates: start: 20120903, end: 20120903

REACTIONS (3)
  - Visual acuity reduced [Unknown]
  - Macular oedema [Unknown]
  - Implant site reaction [Unknown]
